FAERS Safety Report 20806027 (Version 1)
Quarter: 2022Q2

REPORT INFORMATION
  Report Type: Spontaneous
  Country: US (occurrence: US)
  Receive Date: 20220510
  Receipt Date: 20220510
  Transmission Date: 20220721
  Serious: No
  Sender: FDA-Public Use
  Company Number: US-ALLERGAN-2214771US

PATIENT

DRUGS (1)
  1. VUITY [Suspect]
     Active Substance: PILOCARPINE HYDROCHLORIDE

REACTIONS (1)
  - Therapeutic product effect decreased [Unknown]
